FAERS Safety Report 5715323-3 (Version None)
Quarter: 2008Q2

REPORT INFORMATION
  Report Type: 
  Country: None (occurrence: None)
  Receive Date: 20080423
  Receipt Date: 20080415
  Transmission Date: 20081010
  Serious: Yes (Hospitalization)
  Sender: FDA-Public Use
  Company Number: US-MERCK-0705USA05582

PATIENT
  Age: 70 Year
  Sex: Female

DRUGS (2)
  1. FOSAMAX [Suspect]
     Indication: OSTEOPOROSIS
     Route: 048
     Dates: start: 20010101, end: 20060501
  2. FOSAMAX PLUS D [Concomitant]
     Indication: OSTEOPOROSIS
     Route: 065

REACTIONS (9)
  - ANXIETY [None]
  - ARTHRALGIA [None]
  - HYPERTENSION [None]
  - INJURY [None]
  - PAIN IN JAW [None]
  - RESORPTION BONE INCREASED [None]
  - SPINAL FRACTURE [None]
  - SWELLING [None]
  - TOOTH LOSS [None]
